FAERS Safety Report 11217617 (Version 3)
Quarter: 2015Q3

REPORT INFORMATION
  Report Type: Spontaneous
  Country: JP (occurrence: JP)
  Receive Date: 20150625
  Receipt Date: 20150904
  Transmission Date: 20151125
  Serious: Yes (Life-Threatening)
  Sender: FDA-Public Use
  Company Number: PHJP2015JP010358

PATIENT
  Age: 57 Year
  Sex: Male
  Weight: 63 kg

DRUGS (1)
  1. EXFORGE [Suspect]
     Active Substance: AMLODIPINE BESYLATE\VALSARTAN
     Indication: HYPERTENSION
     Dosage: 1 DF, QD
     Route: 048
     Dates: start: 20120206, end: 20131212

REACTIONS (4)
  - Respiratory arrest [Recovered/Resolved]
  - Pharyngeal oedema [Recovered/Resolved]
  - Obstructive airways disorder [Recovered/Resolved]
  - Local swelling [Unknown]

NARRATIVE: CASE EVENT DATE: 20131225
